FAERS Safety Report 9750516 (Version 2)
Quarter: 2013Q4

REPORT INFORMATION
  Report Type: Spontaneous
  Country: JP (occurrence: JP)
  Receive Date: 20131212
  Receipt Date: 20131212
  Transmission Date: 20140711
  Serious: Yes (Disabling)
  Sender: FDA-Public Use
  Company Number: JP-OTSUKA-JP-2013-12271

PATIENT
  Sex: 0

DRUGS (2)
  1. SAMSCA [Suspect]
     Indication: NEPHROTIC SYNDROME
     Dosage: UNK
     Route: 048
     Dates: start: 20130610, end: 20130610
  2. SAMSCA [Suspect]
     Indication: OFF LABEL USE

REACTIONS (5)
  - Purpura [Recovered/Resolved]
  - Erythema [Recovered/Resolved]
  - Purpura [Unknown]
  - Erythema [Unknown]
  - Off label use [Unknown]
